FAERS Safety Report 23307493 (Version 1)
Quarter: 2023Q4

REPORT INFORMATION
  Report Type: Spontaneous
  Country: DE (occurrence: DE)
  Receive Date: 20231218
  Receipt Date: 20231218
  Transmission Date: 20240110
  Serious: Yes (Other)
  Sender: FDA-Public Use
  Company Number: DE-AMGEN-DEUSP2023223281

PATIENT
  Age: 50 Year
  Sex: Male

DRUGS (3)
  1. BEVACIZUMAB [Suspect]
     Active Substance: BEVACIZUMAB
     Indication: Mixed hepatocellular cholangiocarcinoma
     Dosage: UNK
     Route: 065
  2. ATEZOLIZUMAB [Concomitant]
     Active Substance: ATEZOLIZUMAB
     Indication: Mixed hepatocellular cholangiocarcinoma
     Dosage: UNK
     Route: 065
  3. GEMCITABINE CISPLATIN [Concomitant]
     Indication: Mixed hepatocellular cholangiocarcinoma
     Dosage: UNK
     Route: 065

REACTIONS (6)
  - Mixed hepatocellular cholangiocarcinoma [Recovering/Resolving]
  - Metastases to bone [Unknown]
  - Metastases to spine [Unknown]
  - Metastases to pleura [Unknown]
  - Metastases to lymph nodes [Unknown]
  - Off label use [Unknown]
